FAERS Safety Report 13863825 (Version 3)
Quarter: 2017Q4

REPORT INFORMATION
  Report Type: Spontaneous
  Country: DE (occurrence: DE)
  Receive Date: 20170814
  Receipt Date: 20171019
  Transmission Date: 20180320
  Serious: Yes (Other)
  Sender: FDA-Public Use
  Company Number: DE-SUN PHARMACEUTICAL INDUSTRIES LTD-2017RR-147628

PATIENT
  Age: 83 Year
  Sex: Male
  Weight: 56 kg

DRUGS (10)
  1. ATORVASTATIN BASICS  20 MG FILMTABLETTEN [Suspect]
     Active Substance: ATORVASTATIN
     Indication: HYPERLIPIDAEMIA
     Dosage: 1 TABLET IN THE EVENING
     Route: 065
  2. ASS 100 1 A PHARMA TAB, 100^S [Concomitant]
     Dosage: 1 X 1
     Route: 065
     Dates: start: 20170811
  3. ASS 100 1 A PHARMA TAB, 100^S [Concomitant]
     Active Substance: ASPIRIN
     Indication: TRANSIENT ISCHAEMIC ATTACK
     Dosage: 1 X 1
     Route: 065
     Dates: start: 20170425
  4. RAMPIRIL - 1A PHARMA 2.5 MG TABLETS [Concomitant]
     Indication: HYPERTENSION
     Dosage: 1/2-0-1/2
     Route: 065
     Dates: start: 201609
  5. MADOPAR 100/25 [Concomitant]
     Indication: PRODUCT USED FOR UNKNOWN INDICATION
     Dosage: 1/2 TABLET AT BEDTIME
     Route: 065
  6. SIFROL 0.52 MG PROLONGED-RELEASE TABLET [Concomitant]
     Active Substance: PRAMIPEXOLE
     Indication: RESTLESS LEGS SYNDROME
     Dosage: 0-0-1
     Route: 065
     Dates: start: 201508
  7. ATORVASTATIN 1A PHARMA 20 MG FCT, 100^S [Suspect]
     Active Substance: ATORVASTATIN
     Indication: HYPERLIPIDAEMIA
     Dosage: 0-0-1
     Route: 065
     Dates: start: 20170425
  8. ASS 100ABZ PROTECT GASTRO-RESISTANT TABLETS [Concomitant]
     Active Substance: ASPIRIN
     Indication: ANTICOAGULANT THERAPY
     Dosage: 1-0-1
     Route: 065
     Dates: start: 201609
  9. RAMPIRIL - 1A PHARMA 2.5 MG TABLETS [Concomitant]
     Dosage: 1/2-0-1/2
     Route: 065
     Dates: start: 20170425
  10. RAMPIRIL - 1A PHARMA 2.5 MG TABLETS [Concomitant]
     Dosage: 1/2-0-1/2
     Route: 065
     Dates: start: 20170811

REACTIONS (4)
  - Agitation [Recovered/Resolved]
  - Insomnia [Recovering/Resolving]
  - Headache [Recovered/Resolved]
  - Restlessness [Recovered/Resolved]

NARRATIVE: CASE EVENT DATE: 20170206
